FAERS Safety Report 19229879 (Version 2)
Quarter: 2021Q2

REPORT INFORMATION
  Report Type: Spontaneous
  Country: JP (occurrence: JP)
  Receive Date: 20210506
  Receipt Date: 20210525
  Transmission Date: 20210717
  Serious: Yes (Hospitalization, Other)
  Sender: FDA-Public Use
  Company Number: JP-ELI_LILLY_AND_COMPANY-JP202104012400

PATIENT
  Age: 67 Year
  Sex: Female
  Weight: 50 kg

DRUGS (9)
  1. LANSOPRAZOLE. [Concomitant]
     Active Substance: LANSOPRAZOLE
     Dosage: 15 MG, EACH MORNING
  2. OXINORM [OXYCODONE HYDROCHLORIDE] [Concomitant]
     Active Substance: OXYCODONE HYDROCHLORIDE
     Dosage: 20 MG, PRN
  3. FASLODEX [Concomitant]
     Active Substance: FULVESTRANT
     Indication: BREAST CANCER RECURRENT
     Dosage: 500 MG, CYCLICAL
     Route: 030
     Dates: start: 20210120, end: 20210420
  4. ZYPREXA [Concomitant]
     Active Substance: OLANZAPINE
     Dosage: 5 MG, DAILY
  5. VERZENIO [Suspect]
     Active Substance: ABEMACICLIB
     Indication: BREAST CANCER RECURRENT
     Dosage: 150 MG, BID
     Route: 048
     Dates: start: 20210120, end: 20210421
  6. OXYCODONE [Concomitant]
     Active Substance: OXYCODONE
     Dosage: UNK, DAILY
  7. SYMPROIC [Concomitant]
     Active Substance: NALDEMEDINE
     Dosage: 0.2 MG, DAILY
  8. NOVAMIN [PROCHLORPERAZINE MALEATE] [Concomitant]
     Active Substance: PROCHLORPERAZINE MALEATE
     Dosage: 6 MG, PRN
  9. MAGMITT [Concomitant]
     Active Substance: MAGNESIUM OXIDE
     Dosage: 660 MG, TID

REACTIONS (3)
  - Hypokalaemia [Recovered/Resolved]
  - Venous thrombosis [Recovering/Resolving]
  - Malignant neoplasm progression [Unknown]

NARRATIVE: CASE EVENT DATE: 20210422
